FAERS Safety Report 10192519 (Version 1)
Quarter: 2014Q2

REPORT INFORMATION
  Report Type: Spontaneous
  Country: IN (occurrence: IN)
  Receive Date: 20140523
  Receipt Date: 20140523
  Transmission Date: 20141212
  Serious: Yes (Other)
  Sender: FDA-Public Use
  Company Number: PHHY2014IN059727

PATIENT
  Age: 55 Year
  Sex: Female

DRUGS (1)
  1. AMLODIPINE [Suspect]
     Indication: HYPERTENSION
     Dosage: 5 MG, UNK
     Route: 048

REACTIONS (4)
  - Dental plaque [Recovered/Resolved]
  - Gingival bleeding [Recovered/Resolved]
  - Gingival hyperplasia [Recovered/Resolved]
  - Gingival swelling [Recovered/Resolved]
